FAERS Safety Report 18325199 (Version 1)
Quarter: 2020Q3

REPORT INFORMATION
  Report Type: Spontaneous
  Country: ES (occurrence: ES)
  Receive Date: 20200929
  Receipt Date: 20200929
  Transmission Date: 20201103
  Serious: Yes (Death, Other)
  Sender: FDA-Public Use
  Company Number: ES-FRESENIUS KABI-FK202009906

PATIENT
  Age: 79 Year
  Sex: Male

DRUGS (2)
  1. ACYCLOVIR SODIUM (MANUFACTURER UNKNOWN) [Suspect]
     Active Substance: ACYCLOVIR SODIUM
     Indication: ANTIVIRAL TREATMENT
     Dosage: UNKNOWN
     Route: 042
  2. METHYLPREDNISOLONE (MANUFACTURER UNKNOWN) [Suspect]
     Active Substance: METHYLPREDNISOLONE
     Indication: MYASTHENIA GRAVIS
     Dosage: UNKNOWN
     Route: 042

REACTIONS (4)
  - Cytomegalovirus infection [Unknown]
  - Pneumonia [Fatal]
  - Septic shock [Fatal]
  - Herpes virus infection [Unknown]
